FAERS Safety Report 10035685 (Version 1)
Quarter: 2014Q1

REPORT INFORMATION
  Report Type: Spontaneous
  Country: US (occurrence: US)
  Receive Date: 20140325
  Receipt Date: 20140325
  Transmission Date: 20141002
  Serious: Yes (Hospitalization)
  Sender: FDA-Public Use
  Company Number: US-GLAXOSMITHKLINE-A1065397A

PATIENT
  Age: 53 Year
  Sex: Male

DRUGS (3)
  1. VENTOLIN [Suspect]
     Indication: DYSPNOEA
     Dosage: 2PUFF AS REQUIRED
     Route: 055
     Dates: start: 2012
  2. ALBUTEROL + IPRATROPIUM BROMIDE [Concomitant]
  3. ADVIL [Concomitant]

REACTIONS (2)
  - Dyspnoea [Recovering/Resolving]
  - Total lung capacity decreased [Unknown]
